APPROVED DRUG PRODUCT: NYSTATIN
Active Ingredient: NYSTATIN
Strength: 100,000 UNITS/GM
Dosage Form/Route: POWDER;TOPICAL
Application: A065203 | Product #001 | TE Code: AT
Applicant: DR REDDYS LABORATORIES SA
Approved: Jul 15, 2004 | RLD: No | RS: Yes | Type: RX